FAERS Safety Report 11100422 (Version 2)
Quarter: 2015Q2

REPORT INFORMATION
  Report Type: Spontaneous
  Country: US (occurrence: US)
  Receive Date: 20150508
  Receipt Date: 20150519
  Transmission Date: 20150821
  Serious: Yes (Other)
  Sender: FDA-Public Use
  Company Number: US-BAYER-2015-199478

PATIENT
  Age: 29 Year
  Sex: Female
  Weight: 66.67 kg

DRUGS (3)
  1. XANAX [Concomitant]
     Active Substance: ALPRAZOLAM
     Indication: INSOMNIA
  2. MIRENA [Suspect]
     Active Substance: LEVONORGESTREL
     Indication: CONTRACEPTION
     Dosage: 20 MCG/24HR, CONT
     Route: 015
     Dates: start: 20110420, end: 20130422
  3. XANAX [Concomitant]
     Active Substance: ALPRAZOLAM
     Indication: ANXIETY

REACTIONS (10)
  - Abortion spontaneous [None]
  - Genital haemorrhage [None]
  - Injury [None]
  - Device issue [None]
  - Emotional distress [None]
  - Uterine spasm [None]
  - Depression [None]
  - Embedded device [None]
  - Anxiety [None]
  - Pain [None]

NARRATIVE: CASE EVENT DATE: 2012
